FAERS Safety Report 5371315-8 (Version None)
Quarter: 2007Q2

REPORT INFORMATION
  Report Type: 
  Country: None (occurrence: None)
  Receive Date: 20070615
  Receipt Date: 20061031
  Transmission Date: 20071010
  Serious: Yes (Other)
  Sender: FDA-Public Use
  Company Number: 200618252US

PATIENT
  Age: 66 Year
  Sex: Male

DRUGS (18)
  1. LANTUS [Suspect]
     Indication: DIABETES MELLITUS NON-INSULIN-DEPENDENT
     Dates: start: 20060101
  2. LANTUS [Suspect]
     Indication: DIABETES MELLITUS NON-INSULIN-DEPENDENT
     Dosage: 24 U BID
     Dates: start: 20060101
  3. LANTUS [Suspect]
     Indication: DIABETES MELLITUS NON-INSULIN-DEPENDENT
     Dosage: 34 U
     Dates: start: 20060101
  4. OPTICLIK [Suspect]
     Indication: DIABETES MELLITUS NON-INSULIN-DEPENDENT
     Dates: start: 20060801, end: 20061001
  5. OPTICLIK [Suspect]
     Indication: DIABETES MELLITUS NON-INSULIN-DEPENDENT
  6. OPTICLIK [Suspect]
     Dates: start: 20060101, end: 20060101
  7. ACETYSALICYLIC ACID (ASPIRIN) [Concomitant]
  8. PLAVIX [Concomitant]
  9. ATORVASTATIN CALCIUM (LIPITOR) [Concomitant]
  10. LISINOPRIL [Concomitant]
  11. TOPROL-XL [Concomitant]
  12. DIGOXIN [Concomitant]
  13. FISH OIL [Concomitant]
  14. POTASSIUM CHLORIDE [Concomitant]
  15. GABAPENTIN [Concomitant]
  16. GLIPIZIDE [Concomitant]
  17. NORVASC [Concomitant]
  18. METFORMIN HCL [Concomitant]

REACTIONS (2)
  - BLOOD GLUCOSE INCREASED [None]
  - HYPERGLYCAEMIA [None]
